FAERS Safety Report 5341973-2 (Version None)
Quarter: 2007Q2

REPORT INFORMATION
  Report Type: 
  Country: None (occurrence: None)
  Receive Date: 20070405
  Receipt Date: 20070103
  Transmission Date: 20071010
  Serious: Yes (Other)
  Sender: FDA-Public Use
  Company Number: 2007001720

PATIENT
  Age: 38 Year
  Sex: Female

DRUGS (2)
  1. DEPO-SUBQ PROVERA 104 [Suspect]
     Indication: MENOPAUSAL SYMPTOMS
     Dosage: (FIRST INJECTION),SUBCUTANEOUS
     Route: 058
     Dates: start: 20061201, end: 20061201
  2. DEPO-SUBQ PROVERA 104 [Suspect]
     Indication: PREMENSTRUAL SYNDROME
     Dosage: (FIRST INJECTION),SUBCUTANEOUS
     Route: 058
     Dates: start: 20061201, end: 20061201

REACTIONS (3)
  - HOT FLUSH [None]
  - NIGHT SWEATS [None]
  - RECTAL HAEMORRHAGE [None]
